APPROVED DRUG PRODUCT: STERILE WATER IN PLASTIC CONTAINER
Active Ingredient: STERILE WATER FOR IRRIGATION
Strength: 100%
Dosage Form/Route: LIQUID;IRRIGATION
Application: N018246 | Product #001
Applicant: MILES LABORATORIES INC
Approved: Approved Prior to Jan 1, 1982 | RLD: No | RS: No | Type: DISCN